FAERS Safety Report 9325713 (Version 1)
Quarter: 2013Q2

REPORT INFORMATION
  Report Type: Spontaneous
  Country: IT (occurrence: IT)
  Receive Date: 20130604
  Receipt Date: 20130604
  Transmission Date: 20140414
  Serious: Yes (Hospitalization)
  Sender: FDA-Public Use
  Company Number: IT-MYLANLABS-2013S1011220

PATIENT
  Age: 16 Year
  Sex: Female

DRUGS (3)
  1. PAROXETINE [Suspect]
     Indication: PRODUCT USED FOR UNKNOWN INDICATION
     Route: 048
     Dates: start: 20130205, end: 20130205
  2. LORAZEPAM [Suspect]
     Indication: PRODUCT USED FOR UNKNOWN INDICATION
     Route: 048
     Dates: start: 20130205, end: 20130205
  3. MOMENT [Suspect]
     Indication: PRODUCT USED FOR UNKNOWN INDICATION
     Route: 048
     Dates: start: 20130205, end: 20130205

REACTIONS (4)
  - Confusional state [Not Recovered/Not Resolved]
  - Mydriasis [Not Recovered/Not Resolved]
  - Slow speech [Not Recovered/Not Resolved]
  - Drug abuse [Not Recovered/Not Resolved]
